FAERS Safety Report 17272554 (Version 1)
Quarter: 2020Q1

REPORT INFORMATION
  Report Type: Not Available
  Country: US (occurrence: US)
  Receive Date: 20200115
  Receipt Date: 20200115
  Transmission Date: 20200409
  Serious: No
  Sender: FDA-Public Use
  Company Number: US-NEUROCRINE BIOSCIENCES INC.-2020NBI00022

PATIENT
  Sex: Male

DRUGS (13)
  1. INGREZZA [Suspect]
     Active Substance: VALBENAZINE
     Indication: TARDIVE DYSKINESIA
     Route: 048
  2. TRIAMCINOLONE [Concomitant]
     Active Substance: TRIAMCINOLONE
  3. HALDOL [Concomitant]
     Active Substance: HALOPERIDOL
  4. CELEXA [Concomitant]
     Active Substance: CITALOPRAM HYDROBROMIDE
  5. CLOTRIMAZOLE TOPICAL [Concomitant]
     Active Substance: CLOTRIMAZOLE
  6. STATIN [Concomitant]
     Active Substance: UNSPECIFIED INGREDIENT
  7. METFORMIN [Concomitant]
     Active Substance: METFORMIN HYDROCHLORIDE
  8. METOPROLOL. [Concomitant]
     Active Substance: METOPROLOL
  9. CALCIUM [Concomitant]
     Active Substance: CALCIUM
  10. LASIX [Concomitant]
     Active Substance: FUROSEMIDE
  11. LACTULOSE. [Concomitant]
     Active Substance: LACTULOSE
  12. INSULIN [Concomitant]
     Active Substance: INSULIN NOS
  13. LYRICA [Concomitant]
     Active Substance: PREGABALIN

REACTIONS (1)
  - Insomnia [Unknown]
